FAERS Safety Report 20745231 (Version 2)
Quarter: 2022Q2

REPORT INFORMATION
  Report Type: Report from Study
  Country: US (occurrence: US)
  Receive Date: 20220425
  Receipt Date: 20220428
  Transmission Date: 20220720
  Serious: Yes (Other)
  Sender: FDA-Public Use
  Company Number: US-NOVARTISPH-NVSC2022US092183

PATIENT
  Age: 60 Year
  Sex: Male

DRUGS (1)
  1. ENTRESTO [Suspect]
     Active Substance: SACUBITRIL\VALSARTAN
     Indication: Cardiac failure
     Dosage: 100 MG, BID, (49/51MG)
     Route: 048
     Dates: start: 202108

REACTIONS (4)
  - Atrial fibrillation [Recovered/Resolved]
  - Memory impairment [Unknown]
  - Seasonal allergy [Unknown]
  - Cough [Unknown]

NARRATIVE: CASE EVENT DATE: 20210801
